FAERS Safety Report 9264286 (Version 1)
Quarter: 2013Q2

REPORT INFORMATION
  Report Type: Report from Study
  Country: US (occurrence: US)
  Receive Date: 20130430
  Receipt Date: 20130430
  Transmission Date: 20140414
  Serious: Yes (Hospitalization)
  Sender: FDA-Public Use
  Company Number: US-ABBOTT-13P-163-1051890-00

PATIENT
  Age: 61 Year
  Sex: Female
  Weight: 109.87 kg

DRUGS (1)
  1. HUMIRA [Suspect]
     Indication: RHEUMATOID ARTHRITIS
     Route: 058
     Dates: start: 20121101, end: 20130125

REACTIONS (2)
  - Pyrexia [Recovered/Resolved]
  - Bacterial infection [Unknown]
